FAERS Safety Report 5658374-X (Version None)
Quarter: 2008Q1

REPORT INFORMATION
  Report Type: 
  Country: None (occurrence: None)
  Receive Date: 20080310
  Receipt Date: 20070322
  Transmission Date: 20080703
  Serious: No
  Sender: FDA-Public Use
  Company Number: US-BAYER-200710374BCC

PATIENT
  Age: 54 Year
  Sex: Female
  Weight: 64 kg

DRUGS (7)
  1. ALEVE [Suspect]
     Dosage: TOTAL DAILY DOSE: 220 MG  UNIT DOSE: 220 MG
     Route: 048
     Dates: start: 20070131
  2. SYNTHROID [Concomitant]
  3. CALCIUM [Concomitant]
  4. VITAMIN E [Concomitant]
  5. PREVACID [Concomitant]
  6. TYLENOL ES [Concomitant]
  7. MILK OF MAGNESIA TAB [Concomitant]
     Indication: CONSTIPATION

REACTIONS (2)
  - URINARY TRACT DISORDER [None]
  - URINARY TRACT INFECTION [None]
